FAERS Safety Report 17569214 (Version 1)
Quarter: 2020Q1

REPORT INFORMATION
  Report Type: Spontaneous
  Country: US (occurrence: US)
  Receive Date: 20200316
  Receipt Date: 20200316
  Transmission Date: 20200409
  Serious: Yes (Death, Hospitalization)
  Sender: FDA-Public Use
  Company Number: None

PATIENT
  Age: 80 Year
  Sex: Male
  Weight: 88 kg

DRUGS (1)
  1. FACTOR XA, INACTIVATED-ZHZO (FACTOR XA, INACTIVATED-ZHZO 200MG/VIL INJ [Suspect]
     Active Substance: ANDEXANET ALFA
     Indication: SURGERY
     Dates: start: 20200222, end: 20200222

REACTIONS (1)
  - Anaphylactic reaction [None]

NARRATIVE: CASE EVENT DATE: 20200222
